FAERS Safety Report 17529822 (Version 2)
Quarter: 2020Q1

REPORT INFORMATION
  Report Type: Spontaneous
  Country: GB (occurrence: GB)
  Receive Date: 20200311
  Receipt Date: 20200320
  Transmission Date: 20200409
  Serious: Yes (Death, Other)
  Sender: FDA-Public Use
  Company Number: GB-MYLANLABS-2020M1026133

PATIENT
  Age: 79 Year
  Sex: Male
  Weight: 69 kg

DRUGS (10)
  1. BETAHISTINE [Concomitant]
     Active Substance: BETAHISTINE
     Dosage: 48 MILLIGRAM, QD
  2. RISPERIDONE. [Concomitant]
     Active Substance: RISPERIDONE
     Indication: MEMORY IMPAIRMENT
     Dosage: 0.5MG MANE, 1MG EVENING
     Dates: start: 20190418
  3. PARACETAMOL [Concomitant]
     Active Substance: ACETAMINOPHEN
     Dosage: MAX 4HRLY/4G/24H, AS NECESSARY
  4. COLECALCIFEROL [Concomitant]
     Active Substance: CHOLECALCIFEROL
     Dosage: UNK
  5. LUPRON DEPOT [Concomitant]
     Active Substance: LEUPROLIDE ACETATE
     Dosage: 11.25 MILLIGRAM
     Dates: start: 20191129
  6. SENNA                              /00142201/ [Concomitant]
     Active Substance: SENNA LEAF
     Dosage: UNK
  7. LAXIDO [Concomitant]
     Active Substance: POLYETHYLENE GLYCOL 3350\POTASSIUM CHLORIDE\SODIUM BICARBONATE\SODIUM CHLORIDE
     Dosage: MAX 2 IN 24 HOURS, AS NECESSARY
  8. METFORMIN [Concomitant]
     Active Substance: METFORMIN HYDROCHLORIDE
     Indication: DIABETES MELLITUS INADEQUATE CONTROL
     Dosage: 1000 MILLIGRAM, QD
     Dates: start: 20190618
  9. ATORVASTATIN [Concomitant]
     Active Substance: ATORVASTATIN
     Dosage: 40 MILLIGRAM, QD
  10. DONEPEZIL. [Suspect]
     Active Substance: DONEPEZIL
     Indication: COGNITIVE DISORDER
     Dosage: 5 MILLIGRAM
     Route: 048
     Dates: start: 20191228

REACTIONS (2)
  - Completed suicide [Fatal]
  - Suicidal ideation [Not Recovered/Not Resolved]

NARRATIVE: CASE EVENT DATE: 20200105
